FAERS Safety Report 8172746-3 (Version None)
Quarter: 2012Q1

REPORT INFORMATION
  Report Type: 
  Country: None (occurrence: None)
  Receive Date: 20120229
  Receipt Date: 20120220
  Transmission Date: 20120608
  Serious: Yes (Death, Life-Threatening, Hospitalization)
  Sender: FDA-Public Use
  Company Number: JP-AMGEN-JPNCT2011056845

PATIENT
  Age: 73 Year
  Sex: Male
  Weight: 60 kg

DRUGS (7)
  1. ALOXI [Concomitant]
     Indication: COLORECTAL CANCER
     Dosage: 0.75 MG, Q2WK
     Route: 041
     Dates: start: 20110412, end: 20111011
  2. LEVOLEUCOVORIN CALCIUM [Concomitant]
     Indication: COLORECTAL CANCER
     Dosage: 280 MG, Q2WK
     Route: 041
     Dates: start: 20110412, end: 20111011
  3. DEXAMETHASONE SODIUM PHOSPHATE [Concomitant]
     Indication: COLORECTAL CANCER
     Dosage: 8 MG, Q2WK
     Route: 041
     Dates: start: 20110412, end: 20111011
  4. FLUOROURACIL [Concomitant]
     Dosage: UNK UNK, Q2WK
     Route: 041
     Dates: start: 20110412, end: 20111011
  5. OXALIPLATIN [Concomitant]
     Indication: COLORECTAL CANCER
     Dosage: 115 MG, Q2WK
     Route: 041
     Dates: start: 20110412, end: 20111011
  6. PANITUMUMAB [Suspect]
     Indication: COLORECTAL CANCER
     Dosage: UNK UNK, Q2WK|
     Route: 041
     Dates: start: 20110412, end: 20111011
  7. FLUOROURACIL [Concomitant]
     Indication: COLORECTAL CANCER
     Dosage: UNK UNK, Q2WK
     Route: 041
     Dates: start: 20110412, end: 20111011

REACTIONS (1)
  - INTERSTITIAL LUNG DISEASE [None]
